FAERS Safety Report 5613300-4 (Version None)
Quarter: 2008Q1

REPORT INFORMATION
  Report Type: 
  Country: None (occurrence: None)
  Receive Date: 20080130
  Receipt Date: 20080121
  Transmission Date: 20080703
  Serious: Yes (Life-Threatening)
  Sender: FDA-Public Use
  Company Number: GXKR2008MA00985

PATIENT
  Age: 43 Year
  Sex: Male

DRUGS (1)
  1. CARBOPLATIN [Suspect]
     Indication: NASOPHARYNGEAL CANCER
     Dosage: 400 MG/M2, ON DAY 1 EVERY 4 WEEKS, INFUSION

REACTIONS (4)
  - ANURIA [None]
  - HAEMODIALYSIS [None]
  - RENAL CORTICAL NECROSIS [None]
  - RENAL FAILURE CHRONIC [None]
